FAERS Safety Report 15772906 (Version 1)
Quarter: 2018Q4

REPORT INFORMATION
  Report Type: Spontaneous
  Country: AU (occurrence: AU)
  Receive Date: 20181228
  Receipt Date: 20181228
  Transmission Date: 20190205
  Serious: Yes (Other)
  Sender: FDA-Public Use
  Company Number: AU-SHIRE-AU201849321

PATIENT

DRUGS (4)
  1. INTUNIV [Suspect]
     Active Substance: GUANFACINE HYDROCHLORIDE
     Indication: PRODUCT USED FOR UNKNOWN INDICATION
     Dosage: 1 MG, 1X/DAY:QD
     Route: 048
  2. CATAPRES [Concomitant]
     Active Substance: CLONIDINE HYDROCHLORIDE
     Indication: AUTISM SPECTRUM DISORDER
     Route: 065
  3. INTUNIV [Suspect]
     Active Substance: GUANFACINE HYDROCHLORIDE
     Dosage: 4 MG, 1X/DAY:QD
     Route: 048
  4. CONCERTA [Concomitant]
     Active Substance: METHYLPHENIDATE HYDROCHLORIDE
     Indication: AUTISM SPECTRUM DISORDER
     Route: 065

REACTIONS (1)
  - Sunburn [Unknown]
